FAERS Safety Report 8083476-0 (Version None)
Quarter: 2012Q1

REPORT INFORMATION
  Report Type: 
  Country: None (occurrence: None)
  Receive Date: 20120127
  Receipt Date: 20110126
  Transmission Date: 20120608
  Serious: No
  Sender: FDA-Public Use
  Company Number: US-ABBOTT-11P-163-0700791-00

PATIENT
  Sex: Female
  Weight: 57.658 kg

DRUGS (2)
  1. HUMIRA [Suspect]
     Dates: start: 20100201, end: 20101201
  2. HUMIRA [Suspect]
     Indication: CROHN'S DISEASE
     Dates: start: 20070101, end: 20090101

REACTIONS (5)
  - VOMITING [None]
  - WEIGHT DECREASED [None]
  - DRUG DOSE OMISSION [None]
  - HAEMATOCHEZIA [None]
  - DIARRHOEA [None]
